FAERS Safety Report 6403230-2 (Version None)
Quarter: 2009Q4

REPORT INFORMATION
  Report Type: 
  Country: None (occurrence: None)
  Receive Date: 20091016
  Receipt Date: 20091005
  Transmission Date: 20100525
  Serious: No
  Sender: FDA-Public Use
  Company Number: JP-NOVOPROD-291584

PATIENT
  Sex: Female
  Weight: 77 kg

DRUGS (8)
  1. LEVEMIR [Suspect]
     Indication: TYPE 2 DIABETES MELLITUS
     Dosage: UNK, UNK
     Dates: start: 20081201, end: 20090713
  2. HUMALOG [Concomitant]
     Indication: DRUG USE FOR UNKNOWN INDICATION
     Dates: start: 20081201
  3. BLOPRESS [Suspect]
     Indication: DRUG USE FOR UNKNOWN INDICATION
     Dosage: 12 MG, QD
     Route: 048
     Dates: start: 20081118
  4. TOKISYAKUYAKUSAN [Concomitant]
     Dosage: 2.25 G, QD
     Route: 048
  5. GRANDAXIN [Concomitant]
     Dosage: 150 MG, UNK
  6. MYONAL                             /01071502/ [Concomitant]
     Dosage: 150 MG, QD
     Route: 048
  7. LOXONIN                            /00890702/ [Concomitant]
     Dosage: 180 MG, UNK
     Route: 048
  8. MARZULENE ES [Concomitant]
     Dosage: 6 G, QD
     Route: 048

REACTIONS (6)
  - DIZZINESS [None]
  - FEELING ABNORMAL [None]
  - MALAISE [None]
  - NAUSEA [None]
  - STRESS [None]
  - TREMOR [None]
